FAERS Safety Report 8773300 (Version 1)
Quarter: 2012Q4

REPORT INFORMATION
  Report Type: 
  Country: IT (occurrence: IT)
  Receive Date: 20120907
  Receipt Date: 20120907
  Transmission Date: 20130627
  Serious: Yes (Hospitalization)
  Sender: FDA-Public Use
  Company Number: PHHY2012IT077861

PATIENT
  Age: 53 Year
  Sex: Female

DRUGS (1)
  1. OXALIPLATIN [Suspect]
     Indication: COLON CANCER
     Dosage: 360 mg
     Route: 042
     Dates: start: 20120710

REACTIONS (2)
  - Cardiac arrest [Recovered/Resolved]
  - Respiratory failure [Recovered/Resolved]
